FAERS Safety Report 12493457 (Version 3)
Quarter: 2016Q3

REPORT INFORMATION
  Report Type: Report from Study
  Country: US (occurrence: US)
  Receive Date: 20160623
  Receipt Date: 20160714
  Transmission Date: 20161109
  Serious: Yes (Hospitalization)
  Sender: FDA-Public Use
  Company Number: US-BIOGEN-2016BI00254345

PATIENT
  Sex: Female

DRUGS (1)
  1. TYSABRI [Suspect]
     Active Substance: NATALIZUMAB
     Indication: MULTIPLE SCLEROSIS
     Route: 042
     Dates: start: 20160325

REACTIONS (20)
  - Anal incontinence [Recovered/Resolved]
  - Flank pain [Unknown]
  - Headache [Recovered/Resolved]
  - Anaemia [Recovered/Resolved]
  - Blood potassium decreased [Recovered/Resolved]
  - Drug dose omission [Unknown]
  - Nephrolithiasis [Unknown]
  - Dehydration [Recovered/Resolved]
  - Pyrexia [Recovered/Resolved]
  - Asthenia [Recovered/Resolved]
  - Dizziness [Unknown]
  - Platelet count decreased [Recovered/Resolved]
  - Muscle spasms [Unknown]
  - Vomiting [Recovered/Resolved]
  - Blood urine present [Unknown]
  - Urinary incontinence [Recovered/Resolved]
  - Lethargy [Recovered/Resolved]
  - Paraesthesia [Not Recovered/Not Resolved]
  - Confusional state [Recovered/Resolved]
  - Pain in extremity [Not Recovered/Not Resolved]
